FAERS Safety Report 10266194 (Version 1)
Quarter: 2014Q2

REPORT INFORMATION
  Report Type: Spontaneous
  Country: US (occurrence: US)
  Receive Date: 20140627
  Receipt Date: 20140627
  Transmission Date: 20141212
  Serious: No
  Sender: FDA-Public Use
  Company Number: US-009507513-1406USA007894

PATIENT
  Sex: Female

DRUGS (4)
  1. REMERON [Suspect]
     Indication: MAJOR DEPRESSION
     Dosage: 15 MG, BID
     Route: 048
     Dates: start: 201405
  2. KLONOPIN [Concomitant]
  3. XANAX [Concomitant]
  4. RISPERDAL [Concomitant]

REACTIONS (2)
  - Increased appetite [Not Recovered/Not Resolved]
  - Weight increased [Unknown]
